FAERS Safety Report 10451764 (Version 1)
Quarter: 2014Q3

REPORT INFORMATION
  Report Type: Spontaneous
  Country: US (occurrence: US)
  Receive Date: 20140915
  Receipt Date: 20140915
  Transmission Date: 20150326
  Serious: No
  Sender: FDA-Public Use
  Company Number: US-009507513-1409USA000093

PATIENT
  Weight: 89.8 kg

DRUGS (1)
  1. IMPLANON [Suspect]
     Active Substance: ETONOGESTREL
     Dosage: 1 DF, STRENGTH REPORTED AS 68
     Route: 059
     Dates: start: 20111109

REACTIONS (3)
  - No adverse event [Unknown]
  - Device difficult to use [Unknown]
  - Device deployment issue [Unknown]
